FAERS Safety Report 14552402 (Version 1)
Quarter: 2018Q1

REPORT INFORMATION
  Report Type: Spontaneous
  Country: IT (occurrence: IT)
  Receive Date: 20180220
  Receipt Date: 20180220
  Transmission Date: 20180509
  Serious: Yes (Hospitalization)
  Sender: FDA-Public Use
  Company Number: IT-ASTRAZENECA-2018SE18722

PATIENT
  Age: 43 Year
  Sex: Male

DRUGS (4)
  1. ETILTOX [Suspect]
     Active Substance: DISULFIRAM
     Indication: DRUG ABUSE
     Dosage: 9.0DF ONCE/SINGLE ADMINISTRATION
     Route: 048
  2. CARBOLITHIUM [Suspect]
     Active Substance: LITHIUM CARBONATE
     Indication: DRUG ABUSE
     Dosage: 5.0DF ONCE/SINGLE ADMINISTRATION
     Route: 048
  3. QUETIAPINE. [Suspect]
     Active Substance: QUETIAPINE
     Indication: DRUG ABUSE
     Route: 048
  4. ESCITALOPRAM [Suspect]
     Active Substance: ESCITALOPRAM OXALATE
     Indication: DRUG ABUSE
     Dosage: 270.0MG ONCE/SINGLE ADMINISTRATION
     Route: 048

REACTIONS (2)
  - Sopor [Unknown]
  - Drug abuse [Unknown]

NARRATIVE: CASE EVENT DATE: 20161204
